FAERS Safety Report 4273140-8 (Version None)
Quarter: 2004Q1

REPORT INFORMATION
  Report Type: 
  Country: None (occurrence: None)
  Receive Date: 20040116
  Receipt Date: 20040105
  Transmission Date: 20041129
  Serious: Yes (Life-Threatening)
  Sender: FDA-Public Use
  Company Number: FR-GLAXOSMITHKLINE-B0319184A

PATIENT
  Age: 9 Year
  Sex: Female

DRUGS (3)
  1. RANIPLEX [Suspect]
     Dosage: .5UNIT THREE TIMES PER DAY
     Route: 042
     Dates: start: 20031023, end: 20031114
  2. ROCEPHIN [Suspect]
     Indication: ESCHERICHIA URINARY TRACT INFECTION
     Route: 042
     Dates: start: 20031108, end: 20031114
  3. PERFALGAN [Suspect]
     Route: 042
     Dates: start: 20031023

REACTIONS (4)
  - AGRANULOCYTOSIS [None]
  - APHTHOUS STOMATITIS [None]
  - ESCHERICHIA URINARY TRACT INFECTION [None]
  - PYREXIA [None]
